FAERS Safety Report 7999419-1 (Version None)
Quarter: 2011Q4

REPORT INFORMATION
  Report Type: 
  Country: None (occurrence: None)
  Receive Date: 20111221
  Receipt Date: 20111209
  Transmission Date: 20120403
  Serious: Yes (Hospitalization, Other)
  Sender: FDA-Public Use
  Company Number: US-ELI_LILLY_AND_COMPANY-US201112003318

PATIENT
  Sex: Male

DRUGS (13)
  1. HUMALOG [Suspect]
     Indication: DIABETES MELLITUS
     Dosage: UNK, PRN
  2. TEMAZEPAM [Concomitant]
     Indication: INSOMNIA
     Dosage: UNK, PRN
  3. HYDROCODONE [Concomitant]
     Dosage: UNK
  4. BENAZEPRIL HYDROCHLORIDE [Concomitant]
     Dosage: UNK
  5. COREG CR [Concomitant]
     Dosage: UNK
  6. SIMVASTATIN [Concomitant]
     Dosage: UNK
  7. FUROSEMIDE [Concomitant]
     Dosage: UNK
  8. MINOXIDIL [Concomitant]
     Dosage: UNK
  9. NIFEDIPINE [Concomitant]
     Dosage: UNK
  10. NIFEDIAC CC [Concomitant]
     Dosage: UNK
  11. HUMULIN N [Suspect]
     Indication: DIABETES MELLITUS
     Dosage: UNK, PRN
  12. DIOVAN [Concomitant]
     Dosage: UNK
  13. HUMALOG [Suspect]
     Indication: TYPE 1 DIABETES MELLITUS
     Dosage: UNK, PRN

REACTIONS (10)
  - MEDICAL DEVICE COMPLICATION [None]
  - RENAL FAILURE [None]
  - BLOOD GLUCOSE ABNORMAL [None]
  - LOSS OF CONSCIOUSNESS [None]
  - BLOOD GLUCOSE DECREASED [None]
  - HYPOGLYCAEMIC UNCONSCIOUSNESS [None]
  - BLOOD GLUCOSE INCREASED [None]
  - ACCIDENTAL OVERDOSE [None]
  - DRUG DOSE OMISSION [None]
  - DRUG INEFFECTIVE [None]
